FAERS Safety Report 15774531 (Version 2)
Quarter: 2019Q1

REPORT INFORMATION
  Report Type: Spontaneous
  Country: JP (occurrence: JP)
  Receive Date: 20181229
  Receipt Date: 20190108
  Transmission Date: 20190417
  Serious: Yes (Death, Other)
  Sender: FDA-Public Use
  Company Number: JP-GLAXOSMITHKLINE-JP2018JPN232648

PATIENT
  Age: 70 Year
  Sex: Female
  Weight: 46 kg

DRUGS (6)
  1. MEPOLIZUMAB [Suspect]
     Active Substance: MEPOLIZUMAB
     Indication: ASTHMA
     Dosage: 100 MG, ONCE IN EVERY FOUR WEEKS
     Route: 058
     Dates: start: 20181121, end: 20181121
  2. THEODUR TABLETS [Concomitant]
     Indication: ASTHMA
     Dosage: 100 MG, BID(AFTER BREAKFAST AND DINNER)
  3. FLUTIFORM AEROSOL [Concomitant]
     Indication: ASTHMA
     Dosage: 250 ?G, BID
  4. SPIOLTO [Concomitant]
     Active Substance: OLODATEROL HYDROCHLORIDE\TIOTROPIUM BROMIDE MONOHYDRATE
     Indication: CHRONIC OBSTRUCTIVE PULMONARY DISEASE
     Dosage: 2 DF, QD
  5. ALVESCO INHALER [Concomitant]
     Indication: ASTHMA
     Dosage: 400 ?G, QD
  6. SINGULAIR OD TABLETS [Concomitant]
     Indication: ASTHMA
     Dosage: 10 MG, QD(AFTER DINNER)

REACTIONS (6)
  - Cardio-respiratory arrest [Unknown]
  - Wheezing [Unknown]
  - Status asthmaticus [Fatal]
  - Prolonged expiration [Unknown]
  - Cardiovascular disorder [Unknown]
  - Respiratory arrest [Unknown]

NARRATIVE: CASE EVENT DATE: 20181213
